FAERS Safety Report 19395394 (Version 2)
Quarter: 2021Q2

REPORT INFORMATION
  Report Type: Report from Study
  Country: US (occurrence: US)
  Receive Date: 20210609
  Receipt Date: 20210611
  Transmission Date: 20210717
  Serious: No
  Sender: FDA-Public Use
  Company Number: US-AGIOS-2106US02855

PATIENT

DRUGS (1)
  1. TIBSOVO [Suspect]
     Active Substance: IVOSIDENIB
     Indication: CANCER PAIN
     Dosage: 500 MILLIGRAM (TWO 250MG TABLETS), QD
     Route: 048
     Dates: start: 20210329

REACTIONS (2)
  - Off label use [Recovered/Resolved]
  - Disease progression [Unknown]
